FAERS Safety Report 16458970 (Version 1)
Quarter: 2019Q2

REPORT INFORMATION
  Report Type: Spontaneous
  Country: US (occurrence: US)
  Receive Date: 20190620
  Receipt Date: 20190620
  Transmission Date: 20190711
  Serious: No
  Sender: FDA-Public Use
  Company Number: US-THERAPEUTICSMD-2019TMD01063

PATIENT
  Age: 63 Year
  Sex: Female
  Weight: 53.52 kg

DRUGS (11)
  1. IMVEXXY [Suspect]
     Active Substance: ESTRADIOL
     Indication: DYSPAREUNIA
  2. ALLEGRA [Concomitant]
     Active Substance: FEXOFENADINE HYDROCHLORIDE
  3. ALBUTEROL. [Concomitant]
     Active Substance: ALBUTEROL
  4. PREDNISONE. [Concomitant]
     Active Substance: PREDNISONE
  5. BUDESONIDE. [Concomitant]
     Active Substance: BUDESONIDE
  6. TESSALON [Concomitant]
     Active Substance: BENZONATATE
  7. IMVEXXY [Suspect]
     Active Substance: ESTRADIOL
     Indication: HYPERHIDROSIS
     Dosage: 10 ?G, 2X/WEEK IN THE EVENING AROUND BEDTIME
     Route: 067
     Dates: start: 201810, end: 20190520
  8. DULERA [Concomitant]
     Active Substance: FORMOTEROL FUMARATE DIHYDRATE\MOMETASONE FUROATE
  9. OMEPRAZOLE. [Concomitant]
     Active Substance: OMEPRAZOLE
  10. CYMBALTA [Concomitant]
     Active Substance: DULOXETINE HYDROCHLORIDE
  11. FIORICET [Concomitant]
     Active Substance: ACETAMINOPHEN\BUTALBITAL\CAFFEINE

REACTIONS (5)
  - Pruritus [Recovering/Resolving]
  - Urinary tract infection [Recovering/Resolving]
  - Intentional product misuse [Recovered/Resolved]
  - Off label use [Recovered/Resolved]
  - Product use complaint [Recovered/Resolved]

NARRATIVE: CASE EVENT DATE: 201810
